FAERS Safety Report 4618658-0 (Version None)
Quarter: 2005Q2

REPORT INFORMATION
  Report Type: 
  Country: None (occurrence: None)
  Receive Date: 20050311
  Receipt Date: 20041223
  Transmission Date: 20051028
  Serious: No
  Sender: FDA-Public Use
  Company Number: 2004-BP-08987BP

PATIENT
  Age: 61 Year
  Sex: Female

DRUGS (13)
  1. SPIRIVA [Suspect]
     Indication: CHRONIC OBSTRUCTIVE PULMONARY DISEASE
     Dosage: 18 MCG (18 MCG, 1 IN 1 D), IH
     Route: 055
     Dates: start: 20040828
  2. SPIRIVA [Suspect]
  3. ADVAIR DISKUS 100/50 [Concomitant]
  4. ALBUTEROL [Concomitant]
  5. PREDNISONE [Concomitant]
  6. SINGULAIR (MONTELUKAST) [Concomitant]
  7. OXYGEN (OXYGEN) [Concomitant]
  8. GLUCOPHAGE [Concomitant]
  9. PRILOSEC [Concomitant]
  10. SINEMET [Concomitant]
  11. FOSAMAX [Concomitant]
  12. LASIX (LASIX [Concomitant]
  13. COZAAR [Concomitant]

REACTIONS (4)
  - CHEILITIS [None]
  - DRY MOUTH [None]
  - DYSPHONIA [None]
  - STOMATITIS [None]
